FAERS Safety Report 13363279 (Version 3)
Quarter: 2017Q2

REPORT INFORMATION
  Report Type: Report from Study
  Country: RU (occurrence: RU)
  Receive Date: 20170323
  Receipt Date: 20170414
  Transmission Date: 20170830
  Serious: Yes (Hospitalization)
  Sender: FDA-Public Use
  Company Number: RU-ROCHE-1910147

PATIENT
  Age: 52 Year
  Sex: Female
  Weight: 72 kg

DRUGS (9)
  1. CLARITHROMYCIN. [Concomitant]
     Active Substance: CLARITHROMYCIN
     Indication: PYREXIA
  2. ATEZOLIZUMAB [Suspect]
     Active Substance: ATEZOLIZUMAB
     Indication: BREAST CANCER METASTATIC
     Dosage: MOST RECENT DOSE: 28/FEB/2017
     Route: 042
     Dates: start: 20170228
  3. FILGRASTIM [Concomitant]
     Active Substance: FILGRASTIM
     Indication: LEUKOPENIA
     Route: 065
     Dates: start: 20170314, end: 20170316
  4. NAB-PACLITAXEL [Suspect]
     Active Substance: PACLITAXEL
     Indication: BREAST CANCER METASTATIC
     Dosage: MOST RECENT DOSE (181 MG): 07/MAR/2017
     Route: 042
     Dates: start: 20170228
  5. FILGRASTIM [Concomitant]
     Active Substance: FILGRASTIM
     Indication: NEUTROPENIA
  6. ONDANSETRON [Concomitant]
     Active Substance: ONDANSETRON
     Route: 065
     Dates: start: 20170307, end: 20170307
  7. ONDANSETRON [Concomitant]
     Active Substance: ONDANSETRON
     Indication: PREMEDICATION
     Route: 065
     Dates: start: 20170228, end: 20170228
  8. SALBUTAMOL [Concomitant]
     Active Substance: ALBUTEROL
     Indication: ASTHMA
     Route: 065
     Dates: start: 1980
  9. CLARITHROMYCIN. [Concomitant]
     Active Substance: CLARITHROMYCIN
     Indication: COUGH
     Route: 065
     Dates: start: 20170314, end: 20170318

REACTIONS (1)
  - Respiratory tract infection viral [Recovered/Resolved]

NARRATIVE: CASE EVENT DATE: 20170316
